FAERS Safety Report 4552807-8 (Version None)
Quarter: 2005Q1

REPORT INFORMATION
  Report Type: 
  Country: None (occurrence: None)
  Receive Date: 20050114
  Receipt Date: 20050107
  Transmission Date: 20050727
  Serious: Yes (Hospitalization)
  Sender: FDA-Public Use
  Company Number: BR-ROCHE-391925

PATIENT
  Age: 32 Year
  Sex: Female
  Weight: 72 kg

DRUGS (3)
  1. CLONAZEPAM [Suspect]
     Indication: DEPRESSION
     Route: 048
     Dates: start: 20041225
  2. CORTISONE [Concomitant]
     Route: 048
  3. 1 UNSPECIFIED DRUG [Concomitant]
     Route: 048

REACTIONS (4)
  - ORAL MUCOSAL DISORDER [None]
  - SKIN DISCOLOURATION [None]
  - SKIN DISORDER [None]
  - THROMBOCYTOPENIA [None]
